FAERS Safety Report 4384240-6 (Version None)
Quarter: 2004Q2

REPORT INFORMATION
  Report Type: 
  Country: None (occurrence: None)
  Receive Date: 20040624
  Receipt Date: 20040317
  Transmission Date: 20050107
  Serious: Yes (Life-Threatening)
  Sender: FDA-Public Use
  Company Number: PHBS2004JP03741

PATIENT
  Age: 49 Year
  Sex: Male
  Weight: 57 kg

DRUGS (6)
  1. SIMULECT [Suspect]
     Indication: RENAL TRANSPLANT
     Dosage: 20 MG, ONCE/SINGLE
     Route: 042
     Dates: start: 20040316, end: 20040316
  2. SIMULECT [Suspect]
     Dosage: 20 MG, ONCE/SINGLE
     Route: 042
     Dates: start: 20040319, end: 20040319
  3. ANAESTHETICS [Concomitant]
     Dates: start: 20040316
  4. SANDIMMUNE [Concomitant]
     Dosage: 150 MG/D
     Route: 042
     Dates: start: 20040316
  5. SOLU-MEDROL [Concomitant]
     Dosage: 250 MG/D
     Route: 042
     Dates: start: 20040316
  6. CEFAZOLIN [Concomitant]
     Dosage: 2 G/D
     Route: 042
     Dates: start: 20040316

REACTIONS (5)
  - HOARSENESS [None]
  - LARYNGEAL OEDEMA [None]
  - OBSTRUCTIVE AIRWAYS DISORDER [None]
  - PHARYNGEAL OEDEMA [None]
  - POST PROCEDURAL COMPLICATION [None]
